FAERS Safety Report 7539727-1 (Version None)
Quarter: 2011Q2

REPORT INFORMATION
  Report Type: 
  Country: None (occurrence: None)
  Receive Date: 20110609
  Receipt Date: 20110609
  Transmission Date: 20111010
  Serious: Yes (Hospitalization)
  Sender: FDA-Public Use
  Company Number: None

PATIENT
  Sex: Female
  Weight: 12.9 kg

DRUGS (3)
  1. TOPOTECAN [Suspect]
     Dosage: 3.75MG
  2. NEUPOGEN [Suspect]
     Dosage: 1.3MG
  3. CYCLOPHOSPHAMIDE [Suspect]
     Dosage: 1250MG

REACTIONS (10)
  - MENTAL STATUS CHANGES [None]
  - CARDIOPULMONARY FAILURE [None]
  - HYPOXIA [None]
  - CONFUSIONAL STATE [None]
  - RESPIRATORY DISTRESS [None]
  - METAPNEUMOVIRUS INFECTION [None]
  - VOMITING [None]
  - PNEUMOMEDIASTINUM [None]
  - PLEURAL EFFUSION [None]
  - RENAL FAILURE [None]
